FAERS Safety Report 8820680 (Version 1)
Quarter: 2012Q4

REPORT INFORMATION
  Report Type: 
  Country: DK (occurrence: CH)
  Receive Date: 20121002
  Receipt Date: 20121002
  Transmission Date: 20130627
  Serious: Yes (Hospitalization)
  Sender: FDA-Public Use
  Company Number: CH-FRI-1000039071

PATIENT
  Sex: Female

DRUGS (6)
  1. ESCITALOPRAM [Suspect]
     Indication: BIPOLAR DISORDER
     Dosage: 5 mg
     Route: 048
     Dates: end: 20120626
  2. ESCITALOPRAM [Suspect]
     Indication: DEPRESSION
  3. DAFALGAN [Suspect]
     Indication: ANALGESIC THERAPY
     Route: 048
     Dates: end: 20120626
  4. DAFALGAN [Suspect]
     Indication: ANTIINFLAMMATORY THERAPY
  5. GINKGO BILOBA LEAF EXTRACT [Suspect]
     Route: 048
     Dates: end: 20120626
  6. ENALAPRIL [Suspect]
     Indication: ESSENTIAL HYPERTENSION
     Dosage: 10 mg
     Route: 048
     Dates: end: 20120626

REACTIONS (1)
  - Hepatocellular injury [Recovering/Resolving]
